FAERS Safety Report 6126321-2 (Version None)
Quarter: 2009Q1

REPORT INFORMATION
  Report Type: 
  Country: None (occurrence: None)
  Receive Date: 20090320
  Receipt Date: 20090311
  Transmission Date: 20090719
  Serious: Yes (Death, Hospitalization, Other)
  Sender: FDA-Public Use
  Company Number: IT-ROCHE-621373

PATIENT
  Age: 91 Year
  Sex: Female

DRUGS (4)
  1. ALL-TRANS-RETINOIC ACID [Suspect]
     Dosage: DISCONTINUED ON DAY 8
     Route: 065
  2. ALL-TRANS-RETINOIC ACID [Suspect]
     Dosage: DISCONTINUED ON DAY 93
     Route: 065
  3. HYDROXYUREA [Suspect]
     Route: 065
  4. METHYLPREDNISOLONE 4MG TAB [Suspect]
     Route: 065

REACTIONS (3)
  - CLOSTRIDIUM DIFFICILE COLITIS [None]
  - MULTI-ORGAN DISORDER [None]
  - PANCYTOPENIA [None]
